FAERS Safety Report 6687661-1 (Version None)
Quarter: 2010Q2

REPORT INFORMATION
  Report Type: 
  Country: None (occurrence: None)
  Receive Date: 20100415
  Receipt Date: 20100405
  Transmission Date: 20101027
  Serious: Yes (Other)
  Sender: FDA-Public Use
  Company Number: JHP201000131

PATIENT
  Sex: Female

DRUGS (2)
  1. EPINEPHRINE [Suspect]
     Indication: POTENTIATING DRUG INTERACTION
     Dosage: 3 MG/L IN 3 L OF SALINE SOLUTION, INTRAPERITONEAL
     Route: 033
  2. CISPLATIN [Suspect]
     Indication: CHEMOTHERAPY
     Dosage: 30 MG/L IN 3 L OF SALINE SOLUTION FOR TWO 1-HOUR SEQUENCES, INTRAPERITONEAL
     Route: 033

REACTIONS (3)
  - CARDIOTOXICITY [None]
  - TACHYCARDIA [None]
  - VENTRICULAR ASYSTOLE [None]
